FAERS Safety Report 24435905 (Version 2)
Quarter: 2024Q4

REPORT INFORMATION
  Report Type: Spontaneous
  Country: US (occurrence: US)
  Receive Date: 20241015
  Receipt Date: 20241028
  Transmission Date: 20250115
  Serious: Yes (Other)
  Sender: ALKEM
  Company Number: None

PATIENT
  Age: 88 Year
  Sex: Male

DRUGS (1)
  1. MYCOPHENOLATE MOFETIL [Suspect]
     Active Substance: MYCOPHENOLATE MOFETIL
     Indication: Myasthenia gravis
     Dosage: UNK
     Route: 065

REACTIONS (9)
  - Acute kidney injury [Unknown]
  - Skin ulcer [Recovering/Resolving]
  - Lymphadenopathy [Recovering/Resolving]
  - Histoplasmosis disseminated [Recovering/Resolving]
  - Hypokalaemia [Unknown]
  - Normocytic anaemia [Unknown]
  - Leukocytosis [Unknown]
  - Conjunctivitis [Recovering/Resolving]
  - Oedema peripheral [Recovering/Resolving]
